FAERS Safety Report 9761360 (Version 1)
Quarter: 2013Q2

REPORT INFORMATION
  Report Type: Spontaneous
  Country: US (occurrence: None)
  Receive Date: 20130627
  Receipt Date: 20130627
  Transmission Date: 20140414
  Serious: Yes (Death, Life-Threatening, Hospitalization)
  Sender: FDA-Public Use
  Company Number: 1713747-2013-99914

PATIENT
  Age: 66 Year
  Sex: Male

DRUGS (1)
  1. DELFLEX [Suspect]

REACTIONS (3)
  - Cerebrovascular accident [None]
  - Peritonitis [None]
  - Asthenia [None]
